FAERS Safety Report 5206661-1 (Version None)
Quarter: 2007Q1

REPORT INFORMATION
  Report Type: 
  Country: None (occurrence: None)
  Receive Date: 20070109
  Receipt Date: 20061220
  Transmission Date: 20070707
  Serious: No
  Sender: FDA-Public Use
  Company Number: JP200608002207

PATIENT
  Age: 67 Year
  Sex: Male
  Weight: 69.7 kg

DRUGS (6)
  1. HUMACART NPH (HUMAN INSULIN (RDNA ORIGIN) NPH UNKNOWN FORMULATION [Suspect]
     Indication: DIABETES MELLITUS NON-INSULIN-DEPENDENT
     Dosage: SEE IMAGE
     Route: 058
     Dates: start: 20010116, end: 20060221
  2. HUMACART NPH (HUMAN INSULIN (RDNA ORIGIN) NPH UNKNOWN FORMULATION [Suspect]
     Indication: DIABETES MELLITUS NON-INSULIN-DEPENDENT
     Dosage: SEE IMAGE
     Route: 058
     Dates: start: 20060222, end: 20060807
  3. CEROCRAL (IFENPRODIL TARTRATE) TABLET [Concomitant]
  4. FAMOTIDINE (FAMOTIDINE) TABLET [Concomitant]
  5. LENDORM [Concomitant]
  6. PURSENNID/SCH/(SENNOSIDE A+B, SENNOSIDE A+B CALCIUM) TABLET [Concomitant]

REACTIONS (7)
  - ANTI-INSULIN ANTIBODY POSITIVE [None]
  - BLOOD IMMUNOGLOBULIN E INCREASED [None]
  - DRUG HYPERSENSITIVITY [None]
  - ERYTHEMA [None]
  - INJECTION SITE RASH [None]
  - INJECTION SITE SWELLING [None]
  - INJECTION SITE VESICLES [None]
